FAERS Safety Report 6992688-6 (Version None)
Quarter: 2010Q3

REPORT INFORMATION
  Report Type: 
  Country: None (occurrence: None)
  Receive Date: 20100917
  Receipt Date: 20100914
  Transmission Date: 20110219
  Serious: Yes (Other)
  Sender: FDA-Public Use
  Company Number: US-MERCK-1007USA02140

PATIENT
  Age: 39 Year
  Sex: Male
  Weight: 82 kg

DRUGS (3)
  1. PROPECIA [Suspect]
     Indication: ALOPECIA
     Route: 048
     Dates: start: 20090401, end: 20100501
  2. PROPECIA [Suspect]
     Route: 048
     Dates: start: 20100701
  3. BYSTOLIC [Concomitant]
     Indication: HYPERTENSION
     Route: 048
     Dates: start: 20090203

REACTIONS (4)
  - CARDIAC DISORDER [None]
  - CONVULSION [None]
  - MUSCLE TWITCHING [None]
  - PARTIAL SEIZURES [None]
